FAERS Safety Report 8883980 (Version 1)
Quarter: 2012Q4

REPORT INFORMATION
  Report Type: Report from Study
  Country: US (occurrence: US)
  Receive Date: 20121102
  Receipt Date: 20121102
  Transmission Date: 20130627
  Serious: Yes (Hospitalization)
  Sender: FDA-Public Use
  Company Number: US-ROCHE-1151749

PATIENT
  Age: 57 None
  Sex: Male
  Weight: 110.78 kg

DRUGS (1)
  1. CAPECITABINE [Suspect]
     Indication: OESOPHAGEAL CANCER METASTATIC
     Route: 048
     Dates: start: 20120425, end: 20121009

REACTIONS (5)
  - Asthenia [Not Recovered/Not Resolved]
  - Fall [Unknown]
  - Full blood count decreased [Unknown]
  - Weight decreased [Unknown]
  - Pain in extremity [Recovered/Resolved]
